FAERS Safety Report 20255154 (Version 1)
Quarter: 2021Q4

REPORT INFORMATION
  Report Type: Spontaneous
  Country: CN (occurrence: None)
  Receive Date: 20211230
  Receipt Date: 20211230
  Transmission Date: 20220303
  Serious: Yes (Life-Threatening)
  Sender: FDA-Public Use
  Company Number: CN-ROCHE-2985259

PATIENT
  Age: 52 Year
  Sex: Female

DRUGS (3)
  1. CAPECITABINE [Suspect]
     Active Substance: CAPECITABINE
     Indication: Colon cancer recurrent
     Dosage: 1500 MG IN THE MORNING AND 2000 MG AT NIGHT
     Route: 048
     Dates: start: 20211109, end: 20211111
  2. OXALIPLATIN [Suspect]
     Active Substance: OXALIPLATIN
     Indication: Colon cancer recurrent
     Route: 041
     Dates: start: 20211110, end: 20211110
  3. BEVACIZUMAB [Suspect]
     Active Substance: BEVACIZUMAB
     Indication: Colon cancer recurrent
     Route: 041
     Dates: start: 20211110, end: 20211110

REACTIONS (2)
  - Neurotoxicity [Recovered/Resolved]
  - Pharyngeal paraesthesia [Recovered/Resolved]

NARRATIVE: CASE EVENT DATE: 20211110
